FAERS Safety Report 8959915 (Version 2)
Quarter: 2013Q1

REPORT INFORMATION
  Report Type: Spontaneous
  Country: US (occurrence: US)
  Receive Date: 20121212
  Receipt Date: 20130125
  Transmission Date: 20140127
  Serious: No
  Sender: FDA-Public Use
  Company Number: US-009507513-1212USA004035

PATIENT
  Sex: 0

DRUGS (1)
  1. DULERA [Suspect]
     Dosage: 2 PUFFS, BID
     Route: 055
     Dates: start: 201205

REACTIONS (3)
  - Drug dose omission [Unknown]
  - Product quality control issue [Unknown]
  - No adverse event [Unknown]
